FAERS Safety Report 4555363-3 (Version None)
Quarter: 2005Q1

REPORT INFORMATION
  Report Type: 
  Country: None (occurrence: None)
  Receive Date: 20050118
  Receipt Date: 20050118
  Transmission Date: 20050727
  Serious: No
  Sender: FDA-Public Use
  Company Number: None

PATIENT
  Sex: Female
  Weight: 72 kg

DRUGS (2)
  1. RITUXIMAB [Suspect]
     Indication: CHRONIC LYMPHOCYTIC LEUKAEMIA
     Dosage: 375MG/M2 IV Q MONTH/LST DOSE 11/15/04
     Route: 042
     Dates: end: 20041115
  2. FLUDARABINE [Concomitant]

REACTIONS (4)
  - ARTHRALGIA [None]
  - THROAT TIGHTNESS [None]
  - URTICARIA GENERALISED [None]
  - WHEEZING [None]
